FAERS Safety Report 7298388-X (Version None)
Quarter: 2011Q1

REPORT INFORMATION
  Report Type: 
  Country: None (occurrence: None)
  Receive Date: 20110217
  Receipt Date: 20110207
  Transmission Date: 20110831
  Serious: Yes (Other)
  Sender: FDA-Public Use
  Company Number: US-RB-020910-11

PATIENT
  Age: 14 Year
  Sex: Male

DRUGS (2)
  1. MUCINEX [Suspect]
     Indication: PHARYNGITIS STREPTOCOCCAL
     Dosage: PATIENT TOOK ONE TABLET 1 HOUR AGO.
     Route: 048
  2. AZITHROMYCIN [Concomitant]

REACTIONS (1)
  - ABNORMAL SENSATION IN EYE [None]
